FAERS Safety Report 4735978-X (Version None)
Quarter: 2005Q3

REPORT INFORMATION
  Report Type: 
  Country: None (occurrence: None)
  Receive Date: 20050721
  Receipt Date: 20050519
  Transmission Date: 20060218
  Serious: No
  Sender: FDA-Public Use
  Company Number: 2005SP000952

PATIENT
  Age: 70 Year
  Sex: Female
  Weight: 78.9259 kg

DRUGS (4)
  1. LUNESTA [Suspect]
     Indication: SLEEP DISORDER
     Dosage: 2 MG;HS;ORAL
     Route: 048
     Dates: start: 20050514
  2. ATORVASTATIN CALCIUM [Concomitant]
  3. EVISTA [Concomitant]
  4. ANTIHYPERTENSIVES [Concomitant]

REACTIONS (1)
  - DYSGEUSIA [None]
